FAERS Safety Report 8084696-1 (Version None)
Quarter: 2012Q1

REPORT INFORMATION
  Report Type: 
  Country: None (occurrence: None)
  Receive Date: 20120130
  Receipt Date: 20120120
  Transmission Date: 20120608
  Serious: Yes (Other)
  Sender: FDA-Public Use
  Company Number: US-ASTRAZENECA-2011SE77796

PATIENT
  Age: 21 Year
  Sex: Male
  Weight: 63.5 kg

DRUGS (42)
  1. SEROQUEL [Interacting]
     Indication: ATTENTION DEFICIT/HYPERACTIVITY DISORDER
     Route: 048
     Dates: start: 20070101, end: 20080101
  2. SEROQUEL [Interacting]
     Route: 048
     Dates: start: 20080101, end: 20110301
  3. PROZAC [Concomitant]
  4. INVEGA [Concomitant]
  5. SEROQUEL [Suspect]
     Indication: BIPOLAR I DISORDER
     Route: 048
     Dates: start: 20070101, end: 20080101
  6. SEROQUEL [Interacting]
     Route: 048
     Dates: start: 20110301, end: 20111101
  7. SEROQUEL [Interacting]
     Route: 048
     Dates: start: 20100101
  8. ZOLOFT [Concomitant]
  9. STRATTERA [Concomitant]
  10. REMERON [Concomitant]
  11. WELLBUTRIN [Concomitant]
  12. GEODON [Concomitant]
  13. SEROQUEL [Interacting]
     Indication: BIPOLAR DISORDER
     Route: 048
     Dates: start: 20070101, end: 20080101
  14. SEROQUEL [Interacting]
     Route: 048
     Dates: start: 20080101, end: 20110301
  15. SEROQUEL [Interacting]
     Route: 048
     Dates: start: 20110301, end: 20111101
  16. SEROQUEL [Interacting]
     Route: 048
     Dates: start: 20110501
  17. STAVZOR [Interacting]
     Route: 048
     Dates: start: 20100501
  18. CONCERTA [Concomitant]
     Indication: DEPRESSION
     Route: 048
  19. CLONIDINE [Concomitant]
  20. DEPAKOTE ER [Concomitant]
  21. CYMBALTA [Concomitant]
  22. RITALIN [Concomitant]
  23. SEROQUEL [Interacting]
     Route: 048
     Dates: start: 20100101
  24. SEROQUEL [Interacting]
     Route: 048
     Dates: start: 20110501
  25. SEROQUEL [Interacting]
     Route: 048
     Dates: start: 20110501
  26. SEROQUEL [Interacting]
     Route: 048
     Dates: start: 20100101
  27. SYNTHROID [Concomitant]
     Indication: THYROID DISORDER
     Route: 048
     Dates: start: 20110901
  28. DEPLIN [Concomitant]
  29. ABILIFY [Concomitant]
  30. SEROQUEL [Interacting]
     Route: 048
     Dates: start: 20080101, end: 20110301
  31. SEROQUEL [Interacting]
     Route: 048
     Dates: start: 20110301, end: 20111101
  32. STAVZOR [Interacting]
     Route: 048
  33. SEROQUEL [Interacting]
     Indication: OBSESSIVE-COMPULSIVE DISORDER
     Route: 048
     Dates: start: 20070101, end: 20080101
  34. SEROQUEL [Interacting]
     Route: 048
     Dates: start: 20080101, end: 20110301
  35. SEROQUEL [Interacting]
     Route: 048
     Dates: start: 20110301, end: 20111101
  36. RISPERDAL [Concomitant]
  37. PROVIGIL [Concomitant]
  38. LAMICTAL [Concomitant]
  39. SEROQUEL [Interacting]
     Route: 048
     Dates: start: 20100101
  40. SEROQUEL [Interacting]
     Route: 048
     Dates: start: 20110501
  41. XANAX [Concomitant]
  42. ADDERALL 5 [Concomitant]

REACTIONS (10)
  - MOOD SWINGS [None]
  - ABNORMAL BEHAVIOUR [None]
  - WEIGHT INCREASED [None]
  - DRUG INTOLERANCE [None]
  - TARDIVE DYSKINESIA [None]
  - AGGRESSION [None]
  - IMPATIENCE [None]
  - POTENTIATING DRUG INTERACTION [None]
  - OFF LABEL USE [None]
  - DRUG DOSE OMISSION [None]
